FAERS Safety Report 24864856 (Version 1)
Quarter: 2025Q1

REPORT INFORMATION
  Report Type: Spontaneous
  Country: US (occurrence: US)
  Receive Date: 20250121
  Receipt Date: 20250121
  Transmission Date: 20250409
  Serious: No
  Sender: SANOFI AVENTIS
  Company Number: US-SANOFI-02374891

PATIENT
  Age: 57 Year
  Sex: Male
  Weight: 135 kg

DRUGS (1)
  1. FABRAZYME [Suspect]
     Active Substance: AGALSIDASE BETA
     Indication: Fabry^s disease
     Dosage: 135 MG, Q15D
     Route: 042
     Dates: start: 20230825

REACTIONS (4)
  - Depressed mood [Unknown]
  - Therapeutic response shortened [Unknown]
  - Somnolence [Unknown]
  - Asthenia [Unknown]
